FAERS Safety Report 6772161-0 (Version None)
Quarter: 2010Q2

REPORT INFORMATION
  Report Type: 
  Country: None (occurrence: None)
  Receive Date: 20100616
  Receipt Date: 20100408
  Transmission Date: 20101027
  Serious: No
  Sender: FDA-Public Use
  Company Number: US-ASTRAZENECA-2010SE12523

PATIENT
  Sex: Female
  Weight: 77.1 kg

DRUGS (13)
  1. PULMICORT FLEXHAELR [Suspect]
     Indication: CHRONIC OBSTRUCTIVE PULMONARY DISEASE
     Route: 055
  2. PULMICORT FLEXHAELR [Suspect]
     Indication: BRONCHITIS CHRONIC
     Route: 055
  3. PULMICORT FLEXHAELR [Suspect]
     Indication: BRONCHIECTASIS
     Route: 055
  4. PULMICORT FLEXHAELR [Suspect]
     Route: 055
  5. PULMICORT FLEXHAELR [Suspect]
     Route: 055
  6. PULMICORT FLEXHAELR [Suspect]
     Route: 055
  7. NEXIUM [Concomitant]
  8. MAXAIR [Concomitant]
  9. LASIX [Concomitant]
  10. METAXOLONE [Concomitant]
  11. SPIRIVA [Concomitant]
  12. AMARYL GENERIC FORM [Concomitant]
     Indication: DIABETES MELLITUS
  13. VALIUM [Concomitant]
     Indication: PANIC ATTACK

REACTIONS (8)
  - ABDOMINAL DISCOMFORT [None]
  - DYSPNOEA [None]
  - GAIT DISTURBANCE [None]
  - INAPPROPRIATE SCHEDULE OF DRUG ADMINISTRATION [None]
  - INCREASED UPPER AIRWAY SECRETION [None]
  - JOINT SWELLING [None]
  - OEDEMA PERIPHERAL [None]
  - WEIGHT INCREASED [None]
